FAERS Safety Report 20897128 (Version 2)
Quarter: 2022Q2

REPORT INFORMATION
  Report Type: Report from Study
  Country: CA (occurrence: CA)
  Receive Date: 20220531
  Receipt Date: 20220629
  Transmission Date: 20220721
  Serious: Yes (Hospitalization, Other)
  Sender: FDA-Public Use
  Company Number: CA-BRISTOL-MYERS SQUIBB COMPANY-2022-043251

PATIENT
  Age: 64 Year
  Sex: Female

DRUGS (11)
  1. ENASIDENIB [Suspect]
     Active Substance: ENASIDENIB
     Indication: Acute myeloid leukaemia
     Route: 048
     Dates: start: 20220426
  2. VENETOCLAX [Suspect]
     Active Substance: VENETOCLAX
     Indication: Acute myeloid leukaemia
     Route: 048
     Dates: start: 20220425, end: 20220425
  3. VENETOCLAX [Suspect]
     Active Substance: VENETOCLAX
     Route: 048
     Dates: start: 20220520, end: 20220527
  4. ACETAMINOPHEN [Concomitant]
     Active Substance: ACETAMINOPHEN
     Dates: start: 20220414, end: 20220524
  5. ALLOPURINOL [Concomitant]
     Active Substance: ALLOPURINOL
     Dates: start: 20220420, end: 20220527
  6. AMLODIPINE [Concomitant]
     Active Substance: AMLODIPINE BESYLATE
     Dates: start: 20220206, end: 20220527
  7. HYDROMORPHONE [Concomitant]
     Active Substance: HYDROMORPHONE
     Dates: start: 20220501, end: 20220501
  8. HYDROXYUREA [Concomitant]
     Active Substance: HYDROXYUREA
     Dates: start: 20220420, end: 20220420
  9. HYDROXYUREA [Concomitant]
     Active Substance: HYDROXYUREA
     Dates: start: 20220421, end: 20220424
  10. POTASSIUM CHLORIDE [Concomitant]
     Active Substance: POTASSIUM CHLORIDE
     Dates: start: 20220428, end: 20220525
  11. AKABUTUS MOUTHWASH [Concomitant]
     Dates: start: 20220425

REACTIONS (1)
  - Pneumonia fungal [Unknown]

NARRATIVE: CASE EVENT DATE: 20220505
